FAERS Safety Report 5421148-9 (Version None)
Quarter: 2007Q3

REPORT INFORMATION
  Report Type: 
  Country: None (occurrence: None)
  Receive Date: 20070816
  Receipt Date: 20070720
  Transmission Date: 20080115
  Serious: Yes (Other)
  Sender: FDA-Public Use
  Company Number: 6036237

PATIENT
  Age: 25 Year
  Sex: Female

DRUGS (3)
  1. FLUCONAZOLE [Suspect]
     Indication: SYSTEMIC CANDIDA
     Dosage: 600 MG (600 MG, 1 IN 1 D), 800 MG (800 MG, 1 IN 1 D)
     Route: 042
  2. FLUCONAZOLE [Suspect]
     Indication: SYSTEMIC CANDIDA
     Dosage: 600 MG (600 MG, 1 IN 1 D), 800 MG (800 MG, 1 IN 1 D)
     Route: 042
  3. AMIODARONE HCL [Suspect]
     Indication: DRUG USE FOR UNKNOWN INDICATION
     Dosage: INTRAVENOUS
     Route: 042

REACTIONS (2)
  - LOSS OF CONSCIOUSNESS [None]
  - TORSADE DE POINTES [None]
